FAERS Safety Report 16917364 (Version 1)
Quarter: 2019Q4

REPORT INFORMATION
  Report Type: Spontaneous
  Country: US (occurrence: US)
  Receive Date: 20191015
  Receipt Date: 20191015
  Transmission Date: 20200122
  Serious: No
  Sender: FDA-Public Use
  Company Number: US-TEVA-2019-US-1120313

PATIENT
  Sex: Female

DRUGS (1)
  1. CLONAZEPAM. [Suspect]
     Active Substance: CLONAZEPAM
     Indication: NERVOUS SYSTEM DISORDER
     Dosage: 0.5 MG PINK TABLET WITH R 33 ON IT.
     Route: 065

REACTIONS (3)
  - Anxiety [Recovered/Resolved]
  - Product substitution issue [Unknown]
  - Abdominal discomfort [Recovered/Resolved]
